FAERS Safety Report 4610739-0 (Version None)
Quarter: 2005Q1

REPORT INFORMATION
  Report Type: 
  Country: None (occurrence: None)
  Receive Date: 20050222
  Receipt Date: 20040507
  Transmission Date: 20050727
  Serious: Yes (Disabling)
  Sender: FDA-Public Use
  Company Number: WAES 0405USA00540

PATIENT
  Age: 21 Year
  Sex: Male

DRUGS (1)
  1. PROPECIA [Suspect]
     Indication: ALOPECIA
     Dosage: PO
     Route: 048
     Dates: start: 20040426

REACTIONS (3)
  - EJACULATION DISORDER [None]
  - LIBIDO DECREASED [None]
  - TESTICULAR PAIN [None]
